FAERS Safety Report 15147685 (Version 2)
Quarter: 2018Q3

REPORT INFORMATION
  Report Type: Spontaneous
  Country: US (occurrence: US)
  Receive Date: 20180716
  Receipt Date: 20180801
  Transmission Date: 20181010
  Serious: No
  Sender: FDA-Public Use
  Company Number: US-PFIZER INC-2018284484

PATIENT
  Age: 61 Year
  Sex: Male

DRUGS (1)
  1. SUTENT [Suspect]
     Active Substance: SUNITINIB MALATE
     Indication: GASTROINTESTINAL STROMAL TUMOUR
     Dosage: 50 MG, CYCLIC (DAILY FOR 28 DAYS ON AND 14 DAYS OFF)
     Dates: start: 20180627

REACTIONS (6)
  - Abdominal pain [Unknown]
  - Back pain [Unknown]
  - Food craving [Unknown]
  - Fatigue [Unknown]
  - Arthralgia [Unknown]
  - Dysgeusia [Unknown]
